FAERS Safety Report 6011210-4 (Version None)
Quarter: 2008Q4

REPORT INFORMATION
  Report Type: 
  Country: None (occurrence: None)
  Receive Date: 20081218
  Receipt Date: 20081215
  Transmission Date: 20090506
  Serious: Yes (Hospitalization)
  Sender: FDA-Public Use
  Company Number: FR-WYE-G02784108

PATIENT
  Age: 5 Year
  Sex: Female

DRUGS (1)
  1. ADVIL [Suspect]
     Indication: PAIN
     Dosage: ONE SINGLE DOSE
     Route: 048
     Dates: start: 20080405, end: 20080405

REACTIONS (4)
  - EFFUSION [None]
  - HAEMOGLOBIN DECREASED [None]
  - HYPERTHERMIA [None]
  - PERIORBITAL CELLULITIS [None]
